FAERS Safety Report 6753084-X (Version None)
Quarter: 2010Q2

REPORT INFORMATION
  Report Type: 
  Country: None (occurrence: None)
  Receive Date: 20100603
  Receipt Date: 20100527
  Transmission Date: 20101027
  Serious: Yes (Death, Hospitalization, Other)
  Sender: FDA-Public Use
  Company Number: SE-BAYER-200937967GPV

PATIENT
  Age: 64 Year
  Sex: Female
  Weight: 49 kg

DRUGS (7)
  1. NEXAVAR [Suspect]
     Indication: HEPATIC NEOPLASM MALIGNANT
     Dosage: TOTAL DAILY DOSE: 800 MG
     Route: 048
     Dates: start: 20091023, end: 20091104
  2. PRIMPERAN TAB [Concomitant]
     Indication: NAUSEA
     Route: 048
     Dates: start: 20091029
  3. PREDNISOLONE [Concomitant]
     Indication: NAUSEA
     Route: 048
     Dates: start: 20091029
  4. PREDNISOLONE [Concomitant]
     Dates: start: 20091029
  5. OXYCODONE HCL [Concomitant]
     Indication: PAIN
     Dosage: AS USED: 5 MG
     Route: 048
     Dates: start: 20091005
  6. TAVEGYL [Concomitant]
     Indication: PRURITUS
     Route: 048
     Dates: start: 20091022
  7. ZOPIKION [Concomitant]
     Dates: start: 20091022

REACTIONS (5)
  - DECREASED APPETITE [None]
  - DEHYDRATION [None]
  - FATIGUE [None]
  - HEPATIC NEOPLASM MALIGNANT [None]
  - WEIGHT DECREASED [None]
